FAERS Safety Report 24410477 (Version 1)
Quarter: 2024Q4

REPORT INFORMATION
  Report Type: Spontaneous
  Country: US (occurrence: US)
  Receive Date: 20241008
  Receipt Date: 20241008
  Transmission Date: 20250114
  Serious: No
  Sender: AMNEAL
  Company Number: US-AMNEAL PHARMACEUTICALS-2024-AMRX-00598

PATIENT
  Sex: Male

DRUGS (1)
  1. LIDOCAINE [Suspect]
     Active Substance: LIDOCAINE
     Indication: Product used for unknown indication
     Dosage: LIDOCAINE PATCH / 5%
     Route: 062
     Dates: start: 20240219

REACTIONS (2)
  - Product adhesion issue [Unknown]
  - No adverse event [Unknown]
